FAERS Safety Report 22933238 (Version 2)
Quarter: 2023Q4

REPORT INFORMATION
  Report Type: Report from Study
  Country: GB (occurrence: GB)
  Receive Date: 20230912
  Receipt Date: 20231011
  Transmission Date: 20240109
  Serious: Yes (Hospitalization, Other)
  Sender: FDA-Public Use
  Company Number: GB-SA-SAC20230818001484

PATIENT

DRUGS (193)
  1. DEXAMETHASONE [Suspect]
     Active Substance: DEXAMETHASONE
     Indication: Plasma cell myeloma refractory
     Dosage: 10 MG, 1X; IN TOTAL
     Route: 065
     Dates: start: 20230524, end: 20230524
  2. DEXAMETHASONE [Suspect]
     Active Substance: DEXAMETHASONE
     Dosage: 10 MG, QD
     Route: 065
     Dates: start: 20221012, end: 20221012
  3. DEXAMETHASONE [Suspect]
     Active Substance: DEXAMETHASONE
     Dosage: 10 MG, QD
     Route: 065
     Dates: start: 20220116, end: 20220116
  4. DEXAMETHASONE [Suspect]
     Active Substance: DEXAMETHASONE
     Dosage: 10 MG, QD
     Route: 065
     Dates: start: 20230320, end: 20230320
  5. DEXAMETHASONE [Suspect]
     Active Substance: DEXAMETHASONE
     Dosage: 10 MG, QD
     Route: 065
     Dates: start: 20230419, end: 20230419
  6. DEXAMETHASONE [Suspect]
     Active Substance: DEXAMETHASONE
     Dosage: 10 MG, QD
     Route: 065
     Dates: start: 20230206, end: 20230206
  7. DEXAMETHASONE [Suspect]
     Active Substance: DEXAMETHASONE
     Dosage: 10 MG, D22;
     Route: 065
     Dates: start: 20230103, end: 20230103
  8. DEXAMETHASONE [Suspect]
     Active Substance: DEXAMETHASONE
     Dosage: 10 MG, QD
     Route: 065
     Dates: start: 20230412, end: 20230412
  9. DEXAMETHASONE [Suspect]
     Active Substance: DEXAMETHASONE
     Dosage: 10 MG, QD
     Route: 065
     Dates: start: 20221227, end: 20221227
  10. DEXAMETHASONE [Suspect]
     Active Substance: DEXAMETHASONE
     Dosage: 10 MG, QD
     Route: 065
     Dates: start: 20230116, end: 20230116
  11. DEXAMETHASONE [Suspect]
     Active Substance: DEXAMETHASONE
     Dosage: 10 MG, D8;
     Route: 065
     Dates: start: 20230213, end: 20230213
  12. DEXAMETHASONE [Suspect]
     Active Substance: DEXAMETHASONE
     Dosage: 10 MG, QD
     Route: 065
     Dates: start: 20230313, end: 20230313
  13. DEXAMETHASONE [Suspect]
     Active Substance: DEXAMETHASONE
     Dosage: 10 MG, D8;
     Route: 065
     Dates: start: 20221122, end: 20221122
  14. DEXAMETHASONE [Suspect]
     Active Substance: DEXAMETHASONE
     Dosage: 10 MG, QD
     Route: 065
     Dates: start: 20230327, end: 20230418
  15. DEXAMETHASONE [Suspect]
     Active Substance: DEXAMETHASONE
     Dosage: 10 MG, QD
     Route: 065
     Dates: start: 20230306, end: 20230306
  16. DEXAMETHASONE [Suspect]
     Active Substance: DEXAMETHASONE
     Dosage: 10 MG, QW
     Route: 065
     Dates: start: 20230621, end: 20230712
  17. DEXAMETHASONE [Suspect]
     Active Substance: DEXAMETHASONE
     Dosage: 10 MG, 1X; IN TOTAL
     Route: 065
     Dates: start: 20230614, end: 20230614
  18. ISATUXIMAB [Suspect]
     Active Substance: ISATUXIMAB
     Indication: Plasma cell myeloma refractory
     Dosage: 800 MG, QD
     Route: 065
     Dates: start: 20221227, end: 20221227
  19. ISATUXIMAB [Suspect]
     Active Substance: ISATUXIMAB
     Dosage: 800 MG, QD
     Route: 065
     Dates: start: 20221012, end: 20221012
  20. ISATUXIMAB [Suspect]
     Active Substance: ISATUXIMAB
     Dosage: 800 MG, 1X; IN TOTAL
     Route: 065
     Dates: start: 20230726, end: 20230726
  21. ISATUXIMAB [Suspect]
     Active Substance: ISATUXIMAB
     Dosage: 800 MG, QD
     Route: 065
     Dates: start: 20221213, end: 20221213
  22. ISATUXIMAB [Suspect]
     Active Substance: ISATUXIMAB
     Dosage: 800 MG, QD
     Route: 065
     Dates: start: 20230320, end: 20230320
  23. ISATUXIMAB [Suspect]
     Active Substance: ISATUXIMAB
     Dosage: 800 MG, 1X; IN TOTAL
     Route: 065
     Dates: start: 20230607, end: 20230607
  24. ISATUXIMAB [Suspect]
     Active Substance: ISATUXIMAB
     Dosage: 800 MG, 1X; IN TOTAL
     Route: 065
     Dates: start: 20230524, end: 20230524
  25. ISATUXIMAB [Suspect]
     Active Substance: ISATUXIMAB
     Dosage: 800 MG, QD
     Route: 065
     Dates: start: 20230306, end: 20230306
  26. ISATUXIMAB [Suspect]
     Active Substance: ISATUXIMAB
     Dosage: 800 MG, QD
     Route: 065
     Dates: start: 20221115, end: 20221115
  27. ISATUXIMAB [Suspect]
     Active Substance: ISATUXIMAB
     Dosage: 800 MG, TWICE PER CYCLE
     Route: 065
     Dates: start: 20230621, end: 20230705
  28. ISATUXIMAB [Suspect]
     Active Substance: ISATUXIMAB
     Dosage: 800 MG, QD
     Route: 065
     Dates: start: 20230412, end: 20230412
  29. ISATUXIMAB [Suspect]
     Active Substance: ISATUXIMAB
     Dosage: 800 MG, QD
     Route: 065
     Dates: start: 20230206, end: 20230206
  30. ISATUXIMAB [Suspect]
     Active Substance: ISATUXIMAB
     Dosage: 800 MG, QD
     Route: 065
     Dates: start: 20221102, end: 20221102
  31. ISATUXIMAB [Suspect]
     Active Substance: ISATUXIMAB
     Dosage: 800 MG, 1X; IN TOTAL
     Route: 065
     Dates: start: 20230823, end: 20230823
  32. ISATUXIMAB [Suspect]
     Active Substance: ISATUXIMAB
     Dosage: 800 MG, 1X; IN TOTAL
     Route: 065
     Dates: start: 20230906, end: 20230906
  33. ISATUXIMAB [Suspect]
     Active Substance: ISATUXIMAB
     Dosage: 800 MG, QD
     Route: 065
     Dates: start: 20221019, end: 20221019
  34. ISATUXIMAB [Suspect]
     Active Substance: ISATUXIMAB
     Dosage: 800 MG, QD
     Route: 065
     Dates: start: 20221026, end: 20221026
  35. POMALIDOMIDE [Suspect]
     Active Substance: POMALIDOMIDE
     Indication: Plasma cell myeloma refractory
     Dosage: 2 MG, QD
     Route: 065
     Dates: start: 20230109, end: 20230130
  36. POMALIDOMIDE [Suspect]
     Active Substance: POMALIDOMIDE
     Dosage: 2 MG, QD
     Route: 065
     Dates: start: 20230412, end: 20230503
  37. POMALIDOMIDE [Suspect]
     Active Substance: POMALIDOMIDE
     Dosage: 3 MG, QD
     Route: 065
     Dates: start: 20221012, end: 20221102
  38. POMALIDOMIDE [Suspect]
     Active Substance: POMALIDOMIDE
     Dosage: 3 MG, QD
     Route: 065
     Dates: start: 20221213, end: 20230109
  39. POMALIDOMIDE [Suspect]
     Active Substance: POMALIDOMIDE
     Dosage: 2 MG, QD
     Route: 065
     Dates: start: 20230306, end: 20230327
  40. POMALIDOMIDE [Suspect]
     Active Substance: POMALIDOMIDE
     Dosage: 2 MG;
     Route: 065
     Dates: start: 20230524, end: 20230621
  41. POMALIDOMIDE [Suspect]
     Active Substance: POMALIDOMIDE
     Dosage: 2 MG, QD
     Route: 065
     Dates: start: 20230206, end: 20230227
  42. POMALIDOMIDE [Suspect]
     Active Substance: POMALIDOMIDE
     Dosage: 2 MG, QD
     Route: 065
     Dates: start: 20230712, end: 20230802
  43. ACYCLOVIR [Concomitant]
     Active Substance: ACYCLOVIR
     Indication: Antiviral prophylaxis
     Dosage: UNK; ;
     Route: 065
     Dates: start: 2020
  44. CALCIUM CARBONATE\CHOLECALCIFEROL [Concomitant]
     Active Substance: CALCIUM CARBONATE\CHOLECALCIFEROL
     Indication: Prophylaxis
     Dosage: UNK; ;
     Route: 065
     Dates: start: 2023
  45. CALCIUM CARBONATE\CHOLECALCIFEROL [Concomitant]
     Active Substance: CALCIUM CARBONATE\CHOLECALCIFEROL
     Dosage: 1 DF, QD
     Route: 065
     Dates: start: 20230503
  46. CALCIUM CARBONATE\CHOLECALCIFEROL [Concomitant]
     Active Substance: CALCIUM CARBONATE\CHOLECALCIFEROL
     Dosage: UNK; ;
     Route: 065
     Dates: start: 2020
  47. ALLOPURINOL [Concomitant]
     Active Substance: ALLOPURINOL
     Indication: Prophylaxis
     Dosage: UNK; ;
     Route: 065
     Dates: start: 2020
  48. BISOPROLOL [Concomitant]
     Active Substance: BISOPROLOL\BISOPROLOL FUMARATE
     Indication: Cardiac failure
     Dosage: UNK; ;
     Route: 065
     Dates: start: 2020
  49. BUMETANIDE [Concomitant]
     Active Substance: BUMETANIDE
     Indication: Cardiac failure
     Dosage: UNK; ;
     Route: 065
     Dates: start: 20221213
  50. CHLORPHENIRAMINE MALEATE [Concomitant]
     Active Substance: CHLORPHENIRAMINE MALEATE
     Indication: Supportive care
     Dosage: 4 MG, 1X; IN TOTAL
     Route: 065
     Dates: start: 20230726, end: 20230726
  51. CHLORPHENIRAMINE MALEATE [Concomitant]
     Active Substance: CHLORPHENIRAMINE MALEATE
     Dosage: 4 MG, QD
     Route: 065
     Dates: start: 20221213, end: 20221213
  52. CHLORPHENIRAMINE MALEATE [Concomitant]
     Active Substance: CHLORPHENIRAMINE MALEATE
     Dosage: 4 MG, QD
     Route: 065
     Dates: start: 20221012, end: 20221012
  53. CHLORPHENIRAMINE MALEATE [Concomitant]
     Active Substance: CHLORPHENIRAMINE MALEATE
     Dosage: 4 MG, QD
     Route: 065
     Dates: start: 20230206, end: 20230206
  54. CHLORPHENIRAMINE MALEATE [Concomitant]
     Active Substance: CHLORPHENIRAMINE MALEATE
     Dosage: 4 MG, QD
     Route: 065
     Dates: start: 20230412, end: 20230412
  55. CHLORPHENIRAMINE MALEATE [Concomitant]
     Active Substance: CHLORPHENIRAMINE MALEATE
     Dosage: 4 MG, QD
     Route: 065
     Dates: start: 20230306, end: 20230306
  56. CHLORPHENIRAMINE MALEATE [Concomitant]
     Active Substance: CHLORPHENIRAMINE MALEATE
     Dosage: 4 MG, 1X; IN TOTAL
     Route: 065
     Dates: start: 20230607, end: 20230607
  57. CHLORPHENIRAMINE MALEATE [Concomitant]
     Active Substance: CHLORPHENIRAMINE MALEATE
     Dosage: 4 MG, QD
     Route: 065
     Dates: start: 20230320, end: 20230320
  58. CHLORPHENIRAMINE MALEATE [Concomitant]
     Active Substance: CHLORPHENIRAMINE MALEATE
     Dosage: 4 MG, QD
     Route: 065
     Dates: start: 20221115, end: 20221115
  59. CHLORPHENIRAMINE MALEATE [Concomitant]
     Active Substance: CHLORPHENIRAMINE MALEATE
     Dosage: 4 MG, QD
     Route: 065
     Dates: start: 20221227, end: 20221227
  60. CHLORPHENIRAMINE MALEATE [Concomitant]
     Active Substance: CHLORPHENIRAMINE MALEATE
     Dosage: 4 MG,TO BE GIVEN 15-60 MINUTES ISATUXIAB;
     Route: 065
     Dates: start: 20230109, end: 20230109
  61. CHLORPHENIRAMINE MALEATE [Concomitant]
     Active Substance: CHLORPHENIRAMINE MALEATE
     Dosage: 4 MG, 1X; IN TOTAL
     Route: 065
     Dates: start: 20230524, end: 20230524
  62. CHLORPHENIRAMINE MALEATE [Concomitant]
     Active Substance: CHLORPHENIRAMINE MALEATE
     Dosage: UNK
     Route: 065
     Dates: start: 20221026, end: 20221026
  63. CHLORPHENIRAMINE MALEATE [Concomitant]
     Active Substance: CHLORPHENIRAMINE MALEATE
     Dosage: UNK UNK, QCY; CYCLICAL
     Route: 065
     Dates: start: 20230705, end: 20230705
  64. CHLORPHENIRAMINE MALEATE [Concomitant]
     Active Substance: CHLORPHENIRAMINE MALEATE
     Dosage: UNK UNK, QCY; CYCLICAL ;
     Route: 065
     Dates: start: 20230220, end: 20230220
  65. CHLORPHENIRAMINE MALEATE [Concomitant]
     Active Substance: CHLORPHENIRAMINE MALEATE
     Dosage: UNK UNK, QCY; CYCLICAL ;
     Route: 065
     Dates: start: 20230320, end: 20230320
  66. CHLORPHENIRAMINE MALEATE [Concomitant]
     Active Substance: CHLORPHENIRAMINE MALEATE
     Dosage: UNK UNK, QCY; CYCLICAL ;
     Route: 065
     Dates: start: 20230306, end: 20230306
  67. CHLORPHENIRAMINE MALEATE [Concomitant]
     Active Substance: CHLORPHENIRAMINE MALEATE
     Dosage: UNK UNK, QCY; CYCLICAL ;
     Route: 065
     Dates: start: 20230726, end: 20230726
  68. CHLORPHENIRAMINE MALEATE [Concomitant]
     Active Substance: CHLORPHENIRAMINE MALEATE
     Dosage: UNK
     Route: 065
     Dates: start: 20230621, end: 20230621
  69. CHLORPHENIRAMINE MALEATE [Concomitant]
     Active Substance: CHLORPHENIRAMINE MALEATE
     Dosage: 4 MG, QD, EVERY CYCLE
     Route: 065
     Dates: start: 20221213, end: 20221213
  70. CHLORPHENIRAMINE MALEATE [Concomitant]
     Active Substance: CHLORPHENIRAMINE MALEATE
     Dosage: UNK UNK, QCY; CYCLICAL ;
     Route: 065
     Dates: start: 20230123, end: 20230123
  71. CHLORPHENIRAMINE MALEATE [Concomitant]
     Active Substance: CHLORPHENIRAMINE MALEATE
     Dosage: UNK
     Route: 065
     Dates: start: 20221102, end: 20221102
  72. CHLORPHENIRAMINE MALEATE [Concomitant]
     Active Substance: CHLORPHENIRAMINE MALEATE
     Dosage: UNK UNK, QCY; CYCLICAL ;
     Route: 065
     Dates: start: 20230510, end: 20230510
  73. CHLORPHENIRAMINE MALEATE [Concomitant]
     Active Substance: CHLORPHENIRAMINE MALEATE
     Dosage: UNK UNK, QCY; CYCLICAL ;
     Route: 065
     Dates: start: 20230524, end: 20230524
  74. CHLORPHENIRAMINE MALEATE [Concomitant]
     Active Substance: CHLORPHENIRAMINE MALEATE
     Dosage: UNK UNK, QCY; CYCLICAL ;
     Route: 065
     Dates: start: 20230412, end: 20230412
  75. CHLORPHENIRAMINE MALEATE [Concomitant]
     Active Substance: CHLORPHENIRAMINE MALEATE
     Dosage: 4 MG, QCY; CYCLICAL
     Route: 065
     Dates: start: 20221115, end: 20221115
  76. CIPROFLOXACIN [Concomitant]
     Active Substance: CIPROFLOXACIN
     Indication: Prophylaxis
     Dosage: UNK; ;
     Route: 065
     Dates: start: 20230306
  77. COTRIMOXAZOLE [Concomitant]
     Active Substance: SULFAMETHOXAZOLE\TRIMETHOPRIM
     Indication: Antifungal prophylaxis
     Dosage: 960 MG, MON/WED/FRI;
     Route: 065
     Dates: start: 20230109, end: 20230109
  78. COTRIMOXAZOLE [Concomitant]
     Active Substance: SULFAMETHOXAZOLE\TRIMETHOPRIM
     Dosage: 960 MG, MON/WED/FRI 28 DAYS;
     Route: 065
     Dates: start: 20230621, end: 20230719
  79. COTRIMOXAZOLE [Concomitant]
     Active Substance: SULFAMETHOXAZOLE\TRIMETHOPRIM
     Dosage: 960 MG, MON/WED/FRI;
     Route: 065
     Dates: start: 20230412, end: 20230510
  80. COTRIMOXAZOLE [Concomitant]
     Active Substance: SULFAMETHOXAZOLE\TRIMETHOPRIM
     Dosage: UNK; ;
     Route: 065
     Dates: start: 2020
  81. COTRIMOXAZOLE [Concomitant]
     Active Substance: SULFAMETHOXAZOLE\TRIMETHOPRIM
     Dosage: UNK; ;
     Route: 065
     Dates: start: 202303
  82. COTRIMOXAZOLE [Concomitant]
     Active Substance: SULFAMETHOXAZOLE\TRIMETHOPRIM
     Dosage: 960 MG, MON/WED/FRI 28 DAYS;
     Route: 065
     Dates: start: 20230524
  83. COTRIMOXAZOLE [Concomitant]
     Active Substance: SULFAMETHOXAZOLE\TRIMETHOPRIM
     Dosage: 960 MG, MON/WED/FRI;
     Route: 065
     Dates: start: 20221012, end: 20221109
  84. COTRIMOXAZOLE [Concomitant]
     Active Substance: SULFAMETHOXAZOLE\TRIMETHOPRIM
     Dosage: 960 MG, MON/WED/FRI;
     Route: 065
     Dates: start: 20221115, end: 20221115
  85. COTRIMOXAZOLE [Concomitant]
     Active Substance: SULFAMETHOXAZOLE\TRIMETHOPRIM
     Dosage: 960 MG, MON/WED/FRI;
     Route: 065
     Dates: start: 20230726
  86. COTRIMOXAZOLE [Concomitant]
     Active Substance: SULFAMETHOXAZOLE\TRIMETHOPRIM
     Dosage: 960 MG, MON/WED/FRI;
     Route: 065
     Dates: start: 20230206, end: 20230306
  87. COTRIMOXAZOLE [Concomitant]
     Active Substance: SULFAMETHOXAZOLE\TRIMETHOPRIM
     Dosage: 960 MG, QD
     Route: 065
     Dates: start: 20230306, end: 20230403
  88. COTRIMOXAZOLE [Concomitant]
     Active Substance: SULFAMETHOXAZOLE\TRIMETHOPRIM
     Dosage: UNK UNK, QCY; CYCLICAL ;
     Route: 065
     Dates: start: 20230412, end: 20230523
  89. COTRIMOXAZOLE [Concomitant]
     Active Substance: SULFAMETHOXAZOLE\TRIMETHOPRIM
     Dosage: UNK; ;
     Route: 065
     Dates: start: 20221213, end: 20221213
  90. COTRIMOXAZOLE [Concomitant]
     Active Substance: SULFAMETHOXAZOLE\TRIMETHOPRIM
     Dosage: UNK; ;
     Route: 065
     Dates: start: 20230109, end: 20230205
  91. COTRIMOXAZOLE [Concomitant]
     Active Substance: SULFAMETHOXAZOLE\TRIMETHOPRIM
     Dosage: UNK; ;
     Route: 065
     Dates: start: 20221115, end: 20221115
  92. COTRIMOXAZOLE [Concomitant]
     Active Substance: SULFAMETHOXAZOLE\TRIMETHOPRIM
     Dosage: UNK; ;
     Route: 065
     Dates: start: 20230206, end: 20230305
  93. COTRIMOXAZOLE [Concomitant]
     Active Substance: SULFAMETHOXAZOLE\TRIMETHOPRIM
     Dosage: UNK UNK, QCY; CYCLICAL ;
     Route: 065
     Dates: start: 20230524, end: 20230620
  94. COTRIMOXAZOLE [Concomitant]
     Active Substance: SULFAMETHOXAZOLE\TRIMETHOPRIM
     Dosage: UNK UNK, QCY; ;
     Route: 065
     Dates: start: 20230621, end: 20230718
  95. COTRIMOXAZOLE [Concomitant]
     Active Substance: SULFAMETHOXAZOLE\TRIMETHOPRIM
     Dosage: UNK UNK, QCY; ;
     Route: 065
     Dates: start: 20230726, end: 20230822
  96. FILGRASTIM [Concomitant]
     Active Substance: FILGRASTIM
     Indication: Prophylaxis
     Dosage: 300 MG, BIW
     Route: 065
     Dates: start: 20230726
  97. FILGRASTIM [Concomitant]
     Active Substance: FILGRASTIM
     Dosage: 300 MG/M2, BIW
     Route: 065
     Dates: start: 20230306, end: 20230306
  98. FILGRASTIM [Concomitant]
     Active Substance: FILGRASTIM
     Dosage: 300 UG, QW
     Route: 065
     Dates: start: 20221010, end: 20221109
  99. FILGRASTIM [Concomitant]
     Active Substance: FILGRASTIM
     Dosage: 300 UG, BIW
     Route: 065
     Dates: start: 20221213, end: 20230110
  100. FILGRASTIM [Concomitant]
     Active Substance: FILGRASTIM
     Dosage: 300 UG, BIW
     Route: 065
     Dates: start: 20230109, end: 20230109
  101. FILGRASTIM [Concomitant]
     Active Substance: FILGRASTIM
     Dosage: 300 UG, BIW
     Route: 065
     Dates: start: 20221115, end: 20221213
  102. FILGRASTIM [Concomitant]
     Active Substance: FILGRASTIM
     Dosage: 300 MG/M2, BIW
     Route: 065
     Dates: start: 20230412, end: 20230412
  103. FILGRASTIM [Concomitant]
     Active Substance: FILGRASTIM
     Dosage: 300 MG, BIW
     Route: 065
     Dates: start: 20230524
  104. FILGRASTIM [Concomitant]
     Active Substance: FILGRASTIM
     Dosage: 300 MG, BIW
     Route: 065
     Dates: start: 20230621, end: 20230719
  105. FILGRASTIM [Concomitant]
     Active Substance: FILGRASTIM
     Dosage: 300 UG, BIW
     Route: 065
     Dates: start: 20230206, end: 20230221
  106. FILGRASTIM [Concomitant]
     Active Substance: FILGRASTIM
     Dosage: UNK UNK, 1 DOSE WEEKLY
     Route: 065
     Dates: start: 20221012
  107. FILGRASTIM [Concomitant]
     Active Substance: FILGRASTIM
     Dosage: UNKUNK; CYCLICAL ;
     Dates: start: 20221213, end: 20221213
  108. FILGRASTIM [Concomitant]
     Active Substance: FILGRASTIM
     Dosage: UNK UNK, QCY; ;
     Dates: start: 20230524, end: 20230620
  109. FILGRASTIM [Concomitant]
     Active Substance: FILGRASTIM
     Dosage: 300 UG, BIW
     Route: 065
     Dates: start: 20230206, end: 20230305
  110. FILGRASTIM [Concomitant]
     Active Substance: FILGRASTIM
     Dosage: UNK UNK, QCY; CYCLICAL ;
     Route: 065
     Dates: start: 20230306, end: 20230402
  111. FILGRASTIM [Concomitant]
     Active Substance: FILGRASTIM
     Dosage: UNK UNK, QCY; CYCLICAL ;
     Route: 065
     Dates: start: 20221012, end: 20221109
  112. FILGRASTIM [Concomitant]
     Active Substance: FILGRASTIM
     Dosage: UNK; ;
     Route: 065
     Dates: start: 20230621, end: 20230718
  113. FILGRASTIM [Concomitant]
     Active Substance: FILGRASTIM
     Dosage: UNK; ;
     Route: 065
     Dates: start: 20230109, end: 20230205
  114. FILGRASTIM [Concomitant]
     Active Substance: FILGRASTIM
     Dosage: UNK UNK, QCY; CYCLICAL ;
     Route: 065
     Dates: start: 20221115, end: 20221212
  115. FILGRASTIM [Concomitant]
     Active Substance: FILGRASTIM
     Dosage: UNK UNK, QCY; ;
     Route: 065
     Dates: start: 20230412
  116. FINASTERIDE [Concomitant]
     Active Substance: FINASTERIDE
     Indication: Benign prostatic hyperplasia
     Dosage: UNK; ;
     Route: 065
     Dates: start: 2018
  117. FLUCONAZOLE [Concomitant]
     Active Substance: FLUCONAZOLE
     Indication: Infection prophylaxis
     Dosage: UNK; ;
     Route: 065
     Dates: start: 2020
  118. HYDRALAZINE [Concomitant]
     Active Substance: HYDRALAZINE HYDROCHLORIDE
     Indication: Cardiac failure
     Dosage: UNK; ;
     Route: 065
     Dates: start: 2020
  119. HYDRALAZINE [Concomitant]
     Active Substance: HYDRALAZINE HYDROCHLORIDE
     Dosage: UNK; ;
     Route: 065
     Dates: start: 20230418
  120. ISOSORBIDE MONONITRATE [Concomitant]
     Active Substance: ISOSORBIDE MONONITRATE
     Indication: Product used for unknown indication
     Dosage: UNK; ;
     Route: 065
     Dates: start: 2020
  121. LANSOPRAZOLE [Concomitant]
     Active Substance: LANSOPRAZOLE
     Indication: Prophylaxis
     Dosage: UNK; ;
     Route: 065
     Dates: start: 2023
  122. LANSOPRAZOLE [Concomitant]
     Active Substance: LANSOPRAZOLE
     Dosage: UNK; ;
     Route: 065
     Dates: start: 2020
  123. MONTELUKAST [Concomitant]
     Active Substance: MONTELUKAST SODIUM
     Indication: Supportive care
     Dosage: 10 MG, QCY; CYCLICAL
     Route: 065
     Dates: start: 20221012, end: 20221012
  124. MONTELUKAST [Concomitant]
     Active Substance: MONTELUKAST SODIUM
     Dosage: UNK UNK, QCY; CYCLICAL ;
     Route: 065
     Dates: start: 20221102, end: 20221102
  125. MONTELUKAST [Concomitant]
     Active Substance: MONTELUKAST SODIUM
     Dosage: UNK UNK, QCY; CYCLICAL ;
     Route: 065
     Dates: start: 20221026, end: 20221026
  126. ONDANSETRON [Concomitant]
     Active Substance: ONDANSETRON
     Indication: Prophylaxis
     Dosage: UNK, CYCLIC; ;
     Route: 065
     Dates: start: 2020
  127. PAMIDRONATE [Concomitant]
     Active Substance: PAMIDRONATE DISODIUM
     Indication: Product used for unknown indication
     Dosage: 30 MG, QD
     Route: 065
     Dates: start: 20230503, end: 20230503
  128. ACETAMINOPHEN [Concomitant]
     Active Substance: ACETAMINOPHEN
     Indication: Prophylaxis
     Dosage: 1000 MG, QD
     Route: 065
     Dates: start: 20230206, end: 20230206
  129. ACETAMINOPHEN [Concomitant]
     Active Substance: ACETAMINOPHEN
     Indication: Supportive care
     Dosage: 1000 MG, 1X; IN TOTAL
     Route: 065
     Dates: start: 20230524, end: 20230524
  130. ACETAMINOPHEN [Concomitant]
     Active Substance: ACETAMINOPHEN
     Dosage: 1000 MG, QD
     Route: 065
     Dates: start: 20230320, end: 20230320
  131. ACETAMINOPHEN [Concomitant]
     Active Substance: ACETAMINOPHEN
     Dosage: 1000 MG, TWICE PER CYCLE
     Route: 065
     Dates: start: 20230621, end: 20230705
  132. ACETAMINOPHEN [Concomitant]
     Active Substance: ACETAMINOPHEN
     Dosage: 10 MG, QD
     Route: 065
     Dates: start: 20230412, end: 20230412
  133. ACETAMINOPHEN [Concomitant]
     Active Substance: ACETAMINOPHEN
     Dosage: 1000 MG, QD
     Route: 065
     Dates: start: 20221115, end: 20221115
  134. ACETAMINOPHEN [Concomitant]
     Active Substance: ACETAMINOPHEN
     Dosage: 1000 MG, QD
     Route: 065
     Dates: start: 20221012, end: 20221012
  135. ACETAMINOPHEN [Concomitant]
     Active Substance: ACETAMINOPHEN
     Dosage: 1000 MG, QD
     Route: 065
     Dates: start: 20230306, end: 20230306
  136. ACETAMINOPHEN [Concomitant]
     Active Substance: ACETAMINOPHEN
     Dosage: 1000 MG, QD
     Route: 065
     Dates: start: 20221227, end: 20221227
  137. ACETAMINOPHEN [Concomitant]
     Active Substance: ACETAMINOPHEN
     Dosage: 1000 MG, 1X; IN TOTAL
     Route: 065
     Dates: start: 20230607, end: 20230607
  138. ACETAMINOPHEN [Concomitant]
     Active Substance: ACETAMINOPHEN
     Dosage: UNK; ;
     Route: 065
     Dates: start: 2020
  139. ACETAMINOPHEN [Concomitant]
     Active Substance: ACETAMINOPHEN
     Dosage: 1000 MG, QD
     Route: 065
     Dates: start: 20221213, end: 20221213
  140. ACETAMINOPHEN [Concomitant]
     Active Substance: ACETAMINOPHEN
     Dosage: 1000 MG, 1X; IN TOTAL
     Route: 065
     Dates: start: 20230726, end: 20230726
  141. ACETAMINOPHEN [Concomitant]
     Active Substance: ACETAMINOPHEN
     Dosage: 1000 MG, QD
     Route: 065
     Dates: start: 20230109, end: 20230109
  142. ACETAMINOPHEN [Concomitant]
     Active Substance: ACETAMINOPHEN
     Dosage: UNK UNK, QCY; CYCLICAL ;
     Route: 065
     Dates: start: 20221227, end: 20221227
  143. ACETAMINOPHEN [Concomitant]
     Active Substance: ACETAMINOPHEN
     Dosage: UNK, QCY; CYCLICAL ;
     Route: 065
     Dates: start: 20230123, end: 20230123
  144. ACETAMINOPHEN [Concomitant]
     Active Substance: ACETAMINOPHEN
     Dosage: UNK, QCY; CYCLICAL ;
     Route: 065
     Dates: start: 20221019, end: 20221019
  145. ACETAMINOPHEN [Concomitant]
     Active Substance: ACETAMINOPHEN
     Dosage: UNK, QCY; CYCLICAL ;
     Route: 065
     Dates: start: 20230109, end: 20230109
  146. ACETAMINOPHEN [Concomitant]
     Active Substance: ACETAMINOPHEN
     Dosage: UNK, QCY; CYCLICAL ;
     Route: 065
     Dates: start: 20230621, end: 20230621
  147. ACETAMINOPHEN [Concomitant]
     Active Substance: ACETAMINOPHEN
     Dosage: UNK, QCY; CYCLICAL ;
     Route: 065
     Dates: start: 20230607, end: 20230607
  148. ACETAMINOPHEN [Concomitant]
     Active Substance: ACETAMINOPHEN
     Dosage: UNK UNK, QCY; CYCLICAL ;
     Route: 065
     Dates: start: 20230412, end: 20230412
  149. ACETAMINOPHEN [Concomitant]
     Active Substance: ACETAMINOPHEN
     Dosage: UNK UNK, QCY; CYCLICAL ;
     Route: 065
     Dates: start: 20230726, end: 20230726
  150. ACETAMINOPHEN [Concomitant]
     Active Substance: ACETAMINOPHEN
     Dosage: UNK UNK, QCY; CYCLICAL ;
     Route: 065
     Dates: start: 20230320, end: 20230320
  151. ACETAMINOPHEN [Concomitant]
     Active Substance: ACETAMINOPHEN
     Dosage: UNK UNK, QCY; CYCLICAL ;
     Route: 065
     Dates: start: 20221102, end: 20221102
  152. ACETAMINOPHEN [Concomitant]
     Active Substance: ACETAMINOPHEN
     Dosage: UNK, QCY; CYCLICAL ;
     Route: 065
     Dates: start: 20230510, end: 20230510
  153. ACETAMINOPHEN [Concomitant]
     Active Substance: ACETAMINOPHEN
     Dosage: UNK, QCY; CYCLICAL ;
     Route: 065
     Dates: start: 20230206, end: 20230206
  154. ACETAMINOPHEN [Concomitant]
     Active Substance: ACETAMINOPHEN
     Dosage: UNK, QCY; CYCLICAL ;
     Route: 065
     Dates: start: 20230306, end: 20230306
  155. ACETAMINOPHEN [Concomitant]
     Active Substance: ACETAMINOPHEN
     Dosage: 1000 MG, QD, EVERY CYCLE
     Route: 065
     Dates: start: 20221213, end: 20221213
  156. ACETAMINOPHEN [Concomitant]
     Active Substance: ACETAMINOPHEN
     Dosage: UNK, QCY; CYCLICAL ;
     Route: 065
     Dates: start: 20230705, end: 20230705
  157. ACETAMINOPHEN [Concomitant]
     Active Substance: ACETAMINOPHEN
     Dosage: UNK, QCY; CYCLICAL ;
     Route: 065
     Dates: start: 20230524, end: 20230524
  158. PREGABALIN [Concomitant]
     Active Substance: PREGABALIN
     Indication: Neuropathy peripheral
     Dosage: UNK; ;
     Route: 065
     Dates: start: 2020
  159. PREGABALIN [Concomitant]
     Active Substance: PREGABALIN
     Dosage: UNK; ;
     Route: 065
     Dates: start: 2018
  160. RIVAROXABAN [Concomitant]
     Active Substance: RIVAROXABAN
     Indication: Thrombosis prophylaxis
     Dosage: 10 MG, QD
     Route: 065
     Dates: start: 20230306, end: 20230403
  161. RIVAROXABAN [Concomitant]
     Active Substance: RIVAROXABAN
     Dosage: 10 MG, QD
     Route: 065
     Dates: start: 20230206, end: 20230306
  162. RIVAROXABAN [Concomitant]
     Active Substance: RIVAROXABAN
     Dosage: 10 MG, QD
     Route: 065
     Dates: start: 20221012, end: 20221109
  163. RIVAROXABAN [Concomitant]
     Active Substance: RIVAROXABAN
     Dosage: UNK; ;
     Route: 065
     Dates: start: 2020
  164. RIVAROXABAN [Concomitant]
     Active Substance: RIVAROXABAN
     Dosage: 10 MG, QD
     Route: 065
     Dates: start: 20230109, end: 20230206
  165. RIVAROXABAN [Concomitant]
     Active Substance: RIVAROXABAN
     Dosage: 10 MG, QD
     Route: 065
     Dates: start: 20230524, end: 20230621
  166. RIVAROXABAN [Concomitant]
     Active Substance: RIVAROXABAN
     Dosage: 10 MG, QD
     Route: 065
     Dates: start: 20230412, end: 20230510
  167. RIVAROXABAN [Concomitant]
     Active Substance: RIVAROXABAN
     Dosage: 10 MG, QD
     Route: 065
     Dates: start: 20221115, end: 20221213
  168. RIVAROXABAN [Concomitant]
     Active Substance: RIVAROXABAN
     Dosage: 10 MG, QD
     Route: 065
     Dates: start: 20230109, end: 20230206
  169. SODIUM BICARBONATE [Concomitant]
     Active Substance: SODIUM BICARBONATE
     Indication: Chronic kidney disease
     Dosage: UNK; ;
     Route: 065
     Dates: start: 2020
  170. SODIUM BICARBONATE [Concomitant]
     Active Substance: SODIUM BICARBONATE
     Dosage: UNK; ;
     Route: 065
     Dates: start: 20230418
  171. TAMSULOSIN [Concomitant]
     Active Substance: TAMSULOSIN
     Indication: Benign prostatic hyperplasia
     Dosage: UNK; ;
     Route: 065
     Dates: start: 20230418
  172. TAMSULOSIN [Concomitant]
     Active Substance: TAMSULOSIN
     Dosage: UNK; ;
     Route: 065
     Dates: start: 2020
  173. CALCIUM\VITAMIN D [Concomitant]
     Active Substance: CALCIUM\VITAMIN D
     Indication: Supportive care
     Dosage: 1 DOSAGE FORM
     Route: 065
     Dates: start: 20221115, end: 20230206
  174. DEXAMETHASONE [Suspect]
     Active Substance: DEXAMETHASONE
     Indication: Supportive care
     Dosage: UNK UNK, QCY; CYCLICAL ;
     Route: 065
     Dates: start: 20230510, end: 20230510
  175. DEXAMETHASONE [Suspect]
     Active Substance: DEXAMETHASONE
     Dosage: UNK UNK, QCY; CYCLICAL ;
     Route: 065
     Dates: start: 20230206, end: 20230206
  176. DEXAMETHASONE [Suspect]
     Active Substance: DEXAMETHASONE
     Dosage: UNK UNK, QCY; CYCLICAL ;
     Route: 065
     Dates: start: 20230607, end: 20230607
  177. DEXAMETHASONE [Suspect]
     Active Substance: DEXAMETHASONE
     Dosage: UNK UNK, QCY; CYCLICAL ;
     Route: 065
     Dates: start: 20221026, end: 20221026
  178. DEXAMETHASONE [Suspect]
     Active Substance: DEXAMETHASONE
     Dosage: UNK UNK, QCY; CYCLICAL ;
     Route: 065
     Dates: start: 20221019, end: 20221019
  179. DEXAMETHASONE [Suspect]
     Active Substance: DEXAMETHASONE
     Dosage: UNK UNK, QCY; CYCLICAL ;
     Route: 065
     Dates: start: 20230823, end: 20230823
  180. DEXAMETHASONE [Suspect]
     Active Substance: DEXAMETHASONE
     Dosage: UNK UNK, QCY; CYCLICAL ;
     Route: 065
     Dates: start: 20230109, end: 20230109
  181. DEXAMETHASONE [Suspect]
     Active Substance: DEXAMETHASONE
     Dosage: UNK UNK, QCY; CYCLICAL ;
     Route: 065
     Dates: start: 20221102, end: 20221102
  182. DEXAMETHASONE [Suspect]
     Active Substance: DEXAMETHASONE
     Dosage: UNK UNK, QCY; CYCLICAL ;
     Route: 065
     Dates: start: 20230621, end: 20230621
  183. DEXAMETHASONE [Suspect]
     Active Substance: DEXAMETHASONE
     Dosage: UNK UNK, QCY; CYCLICAL ;
     Route: 065
     Dates: start: 20230524, end: 20230524
  184. DEXAMETHASONE [Suspect]
     Active Substance: DEXAMETHASONE
     Dosage: UNK UNK, QCY; CYCLICAL ;
     Route: 065
     Dates: start: 20221213, end: 20221213
  185. DEXAMETHASONE [Suspect]
     Active Substance: DEXAMETHASONE
     Dosage: UNK UNK, QCY; CYCLICAL ;
     Route: 065
     Dates: start: 20230412, end: 20230412
  186. DEXAMETHASONE [Suspect]
     Active Substance: DEXAMETHASONE
     Dosage: UNK UNK, QCY; CYCLICAL ;
     Route: 065
     Dates: start: 20221227, end: 20221227
  187. DEXAMETHASONE [Suspect]
     Active Substance: DEXAMETHASONE
     Dosage: UNK UNK, QCY; CYCLICAL ;
     Route: 065
     Dates: start: 20230306, end: 20230306
  188. DEXAMETHASONE [Suspect]
     Active Substance: DEXAMETHASONE
     Dosage: UNK UNK, QCY; CYCLICAL ;
     Route: 065
     Dates: start: 20230705, end: 20230705
  189. DEXAMETHASONE [Suspect]
     Active Substance: DEXAMETHASONE
     Dosage: UNK UNK, QCY; CYCLICAL ;
     Route: 065
     Dates: start: 20230123, end: 20230123
  190. DEXAMETHASONE [Suspect]
     Active Substance: DEXAMETHASONE
     Dosage: UNK UNK, QCY; CYCLICAL ;
     Route: 065
     Dates: start: 20230320, end: 20230320
  191. DEXAMETHASONE [Suspect]
     Active Substance: DEXAMETHASONE
     Dosage: UNK UNK, QCY; CYCLICAL ;
     Route: 065
     Dates: start: 20230220, end: 20230220
  192. DEXAMETHASONE [Suspect]
     Active Substance: DEXAMETHASONE
     Dosage: UNK UNK, QCY; CYCLICAL ;
     Route: 065
     Dates: start: 20221012, end: 20221012
  193. DEXAMETHASONE [Suspect]
     Active Substance: DEXAMETHASONE
     Dosage: UNK UNK, QCY; CYCLICAL ;
     Route: 065
     Dates: start: 20221115, end: 20221115

REACTIONS (2)
  - Hyperglycaemia [Recovered/Resolved with Sequelae]
  - Acute kidney injury [Recovered/Resolved]

NARRATIVE: CASE EVENT DATE: 20230808
